FAERS Safety Report 11344784 (Version 2)
Quarter: 2015Q4

REPORT INFORMATION
  Report Type: Spontaneous
  Country: US (occurrence: US)
  Receive Date: 20150806
  Receipt Date: 20151002
  Transmission Date: 20160304
  Serious: Yes (Death, Hospitalization, Other)
  Sender: FDA-Public Use
  Company Number: US-GSKJP-US2015GSK110486AA

PATIENT
  Age: 70 Year
  Sex: Male

DRUGS (5)
  1. TAFINLAR [Suspect]
     Active Substance: DABRAFENIB MESYLATE
     Dosage: HALF PREVIOUS DOSE
     Dates: start: 20150605
  2. MEKINIST [Suspect]
     Active Substance: TRAMETINIB DIMETHYL SULFOXIDE
     Dosage: FULL DOSE
     Dates: start: 20150609
  3. TAFINLAR [Suspect]
     Active Substance: DABRAFENIB MESYLATE
     Indication: MALIGNANT MELANOMA
     Dosage: 75 MG/KG, BID
     Route: 048
     Dates: start: 201504, end: 201505
  4. TAFINLAR [Suspect]
     Active Substance: DABRAFENIB MESYLATE
     Dosage: 1 DF, BID
     Dates: start: 20150717
  5. MEKINIST [Suspect]
     Active Substance: TRAMETINIB DIMETHYL SULFOXIDE
     Indication: MALIGNANT MELANOMA
     Dosage: 2 MG/KG, 1D
     Route: 048
     Dates: start: 201504, end: 201505

REACTIONS (17)
  - Anaemia [Unknown]
  - Mental status changes [Unknown]
  - Encephalopathy [Not Recovered/Not Resolved]
  - Thrombocytopenia [Unknown]
  - Blood smear test abnormal [Unknown]
  - Liver function test abnormal [Unknown]
  - Drug ineffective [Unknown]
  - Thrombotic thrombocytopenic purpura [Unknown]
  - Hepatic enzyme increased [Not Recovered/Not Resolved]
  - Haptoglobin decreased [Unknown]
  - Death [Fatal]
  - Diarrhoea [Unknown]
  - Pyrexia [Not Recovered/Not Resolved]
  - Melanoma recurrent [Unknown]
  - Skin lesion [Unknown]
  - Microangiopathic haemolytic anaemia [Unknown]
  - Blood lactate dehydrogenase increased [Unknown]

NARRATIVE: CASE EVENT DATE: 201505
